FAERS Safety Report 13881964 (Version 3)
Quarter: 2017Q3

REPORT INFORMATION
  Report Type: Report from Study
  Country: US (occurrence: US)
  Receive Date: 20170818
  Receipt Date: 20170911
  Transmission Date: 20171127
  Serious: Yes (Hospitalization)
  Sender: FDA-Public Use
  Company Number: PHHO2017US011922

PATIENT
  Age: 19 Year
  Sex: Male

DRUGS (7)
  1. ASPARAGINASE [Suspect]
     Active Substance: ASPARAGINASE
     Indication: ACUTE LYMPHOCYTIC LEUKAEMIA
     Dosage: 60000 U, QOD (ON DAYS 43-52)
     Route: 030
     Dates: start: 20161126, end: 20170709
  2. METHOTREXATE. [Suspect]
     Active Substance: METHOTREXATE
     Indication: ACUTE LYMPHOCYTIC LEUKAEMIA
     Dosage: 15 MG, (DAYS 29 AND 36)
     Route: 037
     Dates: start: 20161111
  3. INC424A [Suspect]
     Active Substance: RUXOLITINIB
     Indication: ACUTE LYMPHOCYTIC LEUKAEMIA
     Dosage: 80 MG, BID (14 DAYS ON AND 14 DAYS OFF)
     Route: 048
     Dates: start: 20161111, end: 20170710
  4. VINCRISTINE [Suspect]
     Active Substance: VINCRISTINE
     Indication: ACUTE LYMPHOCYTIC LEUKAEMIA
     Dosage: 2 MG, (DAYS 1, 8, 15)
     Route: 042
     Dates: start: 20161125
  5. METHOTREXATE. [Suspect]
     Active Substance: METHOTREXATE
     Dosage: 387 (UNITS UNSPECIFIED) D1, 11, 21, 31, 41
     Route: 037
     Dates: start: 20170627, end: 20170707
  6. METHOTREXATE. [Suspect]
     Active Substance: METHOTREXATE
     Dosage: (OFF PROTOCOL TREATMENT)
     Route: 065
     Dates: start: 20170801
  7. VINCRISTINE [Suspect]
     Active Substance: VINCRISTINE
     Dosage: (OFF PROTOCOL TREATMENT)
     Route: 042
     Dates: start: 20170801

REACTIONS (3)
  - Acute kidney injury [Recovered/Resolved]
  - Stomatitis [Recovered/Resolved]
  - Febrile neutropenia [Recovered/Resolved]

NARRATIVE: CASE EVENT DATE: 20170803
